FAERS Safety Report 20196062 (Version 1)
Quarter: 2021Q4

REPORT INFORMATION
  Report Type: Spontaneous
  Country: GB (occurrence: GB)
  Receive Date: 20211216
  Receipt Date: 20211216
  Transmission Date: 20220303
  Serious: Yes (Other)
  Sender: FDA-Public Use
  Company Number: None

PATIENT
  Age: 11 Year
  Sex: Male
  Weight: 33 kg

DRUGS (15)
  1. TOPAMAX [Suspect]
     Active Substance: TOPIRAMATE
     Indication: Epilepsy
     Route: 048
     Dates: start: 20211125
  2. AZITHROMYCIN [Concomitant]
     Active Substance: AZITHROMYCIN
  3. MIDAZOLAM HYDROCHLORIDE [Concomitant]
     Active Substance: MIDAZOLAM HYDROCHLORIDE
  4. CHLORAL HYDRATE [Concomitant]
     Active Substance: CHLORAL HYDRATE
  5. CLOBAZAM [Concomitant]
     Active Substance: CLOBAZAM
  6. CREON [Concomitant]
     Active Substance: PANCRELIPASE AMYLASE\PANCRELIPASE LIPASE\PANCRELIPASE PROTEASE
  7. DALIVIT [Concomitant]
  8. EPILIM [Concomitant]
     Active Substance: VALPROATE SODIUM
  9. MELATONIN [Concomitant]
     Active Substance: MELATONIN
  10. MORPHINE SULFATE [Concomitant]
     Active Substance: MORPHINE SULFATE
  11. ACETAMINOPHEN [Concomitant]
     Active Substance: ACETAMINOPHEN
  12. PARALDEHYDE [Concomitant]
     Active Substance: PARALDEHYDE
     Route: 054
  13. DIAZEPAM [Concomitant]
     Active Substance: DIAZEPAM
     Route: 054
  14. SODIUM FEREDETATE [Concomitant]
     Active Substance: SODIUM FEREDETATE
  15. VITAMIN E [Concomitant]
     Active Substance: .ALPHA.-TOCOPHEROL

REACTIONS (4)
  - Pancreatitis [Recovering/Resolving]
  - Pain [Unknown]
  - Nausea [Unknown]
  - Diarrhoea [Unknown]

NARRATIVE: CASE EVENT DATE: 20211126
